FAERS Safety Report 9568057 (Version 1)
Quarter: 2013Q3

REPORT INFORMATION
  Report Type: Spontaneous
  Country: US (occurrence: US)
  Receive Date: 20130930
  Receipt Date: 20130930
  Transmission Date: 20140515
  Serious: No
  Sender: FDA-Public Use
  Company Number: US-AMGEN-USASP2013054261

PATIENT
  Age: 44 Year
  Sex: Female
  Weight: 68.03 kg

DRUGS (4)
  1. ENBREL [Suspect]
     Indication: PRODUCT USED FOR UNKNOWN INDICATION
     Dosage: 50 MG, QWK
     Route: 058
  2. CELEBREX [Concomitant]
     Dosage: 100 MG, UNK
  3. IMITREX                            /01044801/ [Concomitant]
     Dosage: 50 MG, UNK
  4. YAZ [Concomitant]
     Dosage: 3-0.02 MG, UNK

REACTIONS (1)
  - Insomnia [Unknown]
